FAERS Safety Report 5229823-6 (Version None)
Quarter: 2007Q1

REPORT INFORMATION
  Report Type: 
  Country: None (occurrence: None)
  Receive Date: 20070206
  Receipt Date: 20060630
  Transmission Date: 20070707
  Serious: No
  Sender: FDA-Public Use
  Company Number: US-GLAXOSMITHKLINE-A0552200A

PATIENT
  Sex: Female

DRUGS (1)
  1. PAROXETINE HCL [Suspect]
     Indication: PANIC ATTACK
     Dosage: 40MG UNKNOWN
     Route: 048

REACTIONS (4)
  - ANXIETY [None]
  - DRUG INEFFECTIVE [None]
  - PANIC ATTACK [None]
  - WEIGHT INCREASED [None]
